FAERS Safety Report 23298724 (Version 1)
Quarter: 2023Q4

REPORT INFORMATION
  Report Type: Spontaneous
  Country: CN (occurrence: CN)
  Receive Date: 20231214
  Receipt Date: 20231214
  Transmission Date: 20240109
  Serious: Yes (Other)
  Sender: FDA-Public Use
  Company Number: None

PATIENT
  Age: 31 Year
  Sex: Female

DRUGS (4)
  1. CYCLOPHOSPHAMIDE [Suspect]
     Active Substance: CYCLOPHOSPHAMIDE
     Indication: Gestational trophoblastic tumour
     Dosage: 0.88 G, ONE TIME IN 1 DAY, DILUTED WITH 100 ML OF 0.9% SODIUM CHLORIDE AT START TIME: 12:15
     Route: 041
     Dates: start: 20231127, end: 20231127
  2. SODIUM CHLORIDE [Suspect]
     Active Substance: SODIUM CHLORIDE
     Indication: Medication dilution
     Dosage: 100 ML ONE TIME IN ONE DAY, USED TO DILUTE CYCLOPHOSPHAMIDE(0.88 G), INJECTION AT START TIME: 12:15
     Route: 041
     Dates: start: 20231127, end: 20231127
  3. DEXTROSE [Suspect]
     Active Substance: DEXTROSE\DEXTROSE MONOHYDRATE
     Indication: Medication dilution
     Dosage: 500 ML, ONE TIME IN ONE DAY, USED TO DILUTE VINDESINE SULFATE (4.40 MG), START TIME: 12:15
     Route: 041
     Dates: start: 20231127, end: 20231127
  4. VINDESINE SULFATE [Suspect]
     Active Substance: VINDESINE SULFATE
     Indication: Gestational trophoblastic tumour
     Dosage: 4.4 MG, ONE TIME IN ONE DAY, DILUTED WITH 500 ML OF 5% GLUCOSE, START TIME: 12:15
     Route: 041
     Dates: start: 20231127, end: 20231127

REACTIONS (3)
  - White blood cell count decreased [Recovering/Resolving]
  - Neutrophil count decreased [Recovering/Resolving]
  - Mouth ulceration [Not Recovered/Not Resolved]

NARRATIVE: CASE EVENT DATE: 20231127
